FAERS Safety Report 7250364-9 (Version None)
Quarter: 2011Q1

REPORT INFORMATION
  Report Type: 
  Country: None (occurrence: None)
  Receive Date: 20110128
  Receipt Date: 20100414
  Transmission Date: 20110831
  Serious: No
  Sender: FDA-Public Use
  Company Number: A0855012A

PATIENT
  Age: 24 Year
  Sex: Female

DRUGS (3)
  1. COMBIVIR [Suspect]
     Indication: HIV INFECTION
     Dosage: 1TAB TWICE PER DAY
     Route: 048
     Dates: start: 20100329, end: 20100414
  2. KALETRA [Concomitant]
  3. BACTRIM DS [Concomitant]

REACTIONS (4)
  - NAUSEA [None]
  - DIARRHOEA [None]
  - VOMITING [None]
  - DIZZINESS [None]
